FAERS Safety Report 9953118 (Version 2)
Quarter: 2014Q1

REPORT INFORMATION
  Report Type: Report from Study
  Country: US (occurrence: US)
  Receive Date: 20140304
  Receipt Date: 20140304
  Transmission Date: 20141002
  Serious: No
  Sender: FDA-Public Use
  Company Number: US-ABBVIE-13P-163-1067443-00

PATIENT
  Age: 65 Year
  Sex: Female

DRUGS (8)
  1. HUMIRA [Suspect]
     Indication: CROHN^S DISEASE
     Dosage: ONCE
     Dates: start: 20130314, end: 20130314
  2. HUMIRA [Suspect]
     Dosage: ONCE
     Dates: start: 20130415, end: 20130415
  3. DIGOXIN [Concomitant]
     Indication: CARDIOVASCULAR EVENT PROPHYLAXIS
     Dosage: 1 PILL EVERY OTHER DAY AND 1/2 EVERY OTHER DAY
  4. METFORMIN [Concomitant]
     Indication: DIABETES MELLITUS
  5. SYNTHROID [Concomitant]
     Indication: THYROID DISORDER
     Dosage: 1 PILL DAILY
  6. ATENOLOL [Concomitant]
     Indication: HYPERTENSION
  7. BENAZEPRIL [Concomitant]
     Indication: PRODUCT USED FOR UNKNOWN INDICATION
     Dosage: 1 PILL DAILY
  8. ALEVE [Concomitant]
     Indication: PRODUCT USED FOR UNKNOWN INDICATION

REACTIONS (6)
  - Asthenia [Not Recovered/Not Resolved]
  - Nausea [Not Recovered/Not Resolved]
  - Injection site urticaria [Not Recovered/Not Resolved]
  - Rash [Not Recovered/Not Resolved]
  - Gastrointestinal pain [Not Recovered/Not Resolved]
  - Pruritus [Not Recovered/Not Resolved]
